FAERS Safety Report 24616447 (Version 1)
Quarter: 2024Q4

REPORT INFORMATION
  Report Type: Spontaneous
  Country: CN (occurrence: CN)
  Receive Date: 20241114
  Receipt Date: 20241114
  Transmission Date: 20250115
  Serious: Yes (Other)
  Sender: SHANGHAI HENGRUI PHARMACEUTICAL
  Company Number: CN-Shanghai Hengrui Pharmaceutical Co., Ltd.-2165017

PATIENT
  Age: 12 Month
  Sex: Male
  Weight: 11 kg

DRUGS (3)
  1. SEVOFLURANE [Suspect]
     Active Substance: SEVOFLURANE
     Indication: Maintenance of anaesthesia
     Dates: start: 20241030, end: 20241030
  2. ESKETAMINE HYDROCHLORIDE [Suspect]
     Active Substance: ESKETAMINE HYDROCHLORIDE
     Dates: start: 20241030, end: 20241030
  3. ATROPINE SULFATE [Suspect]
     Active Substance: ATROPINE SULFATE
     Dates: start: 20241030, end: 20241030

REACTIONS (1)
  - Anaphylactic shock [Recovering/Resolving]

NARRATIVE: CASE EVENT DATE: 20241030
